FAERS Safety Report 16835319 (Version 1)
Quarter: 2019Q3

REPORT INFORMATION
  Report Type: Spontaneous
  Country: CA (occurrence: CA)
  Receive Date: 20190920
  Receipt Date: 20190920
  Transmission Date: 20191005
  Serious: Yes (Other)
  Sender: FDA-Public Use
  Company Number: CA-TEVA-2019-CA-1111305

PATIENT
  Age: 53 Year
  Sex: Male
  Weight: 65 kg

DRUGS (3)
  1. DEXILANT [Concomitant]
     Active Substance: DEXLANSOPRAZOLE
     Indication: PRODUCT USED FOR UNKNOWN INDICATION
     Route: 065
  2. TELMISARTAN. [Suspect]
     Active Substance: TELMISARTAN
     Indication: HYPERTENSION
     Dosage: 40 MILLIGRAM DAILY;
     Route: 065
  3. BISOPROLOL [Concomitant]
     Active Substance: BISOPROLOL
     Indication: PRODUCT USED FOR UNKNOWN INDICATION
     Route: 065

REACTIONS (6)
  - Tinnitus [Recovered/Resolved]
  - Blood pressure increased [Recovered/Resolved]
  - Condition aggravated [Recovered/Resolved]
  - Paraesthesia [Recovered/Resolved]
  - Product substitution issue [Recovered/Resolved]
  - Drug ineffective [Recovered/Resolved]
